FAERS Safety Report 11121136 (Version 5)
Quarter: 2015Q3

REPORT INFORMATION
  Report Type: Spontaneous
  Country: BR (occurrence: None)
  Receive Date: 20150515
  Receipt Date: 20150709
  Transmission Date: 20151125
  Serious: Yes (Other)
  Sender: FDA-Public Use
  Company Number: BR-2015VAL000308

PATIENT
  Age: 81 Year
  Sex: Male
  Weight: 67 kg

DRUGS (9)
  1. VASTAREL (TRIMETAZINDINE HYDROCHLORIDE) [Concomitant]
  2. ASPIRIN PROTECT (ACETYLSALICYLIC ACID) [Concomitant]
  3. PARLODEL SRO [Suspect]
     Active Substance: BROMOCRIPTINE MESYLATE
     Indication: BLOOD PROLACTIN ABNORMAL
     Route: 048
  4. OLCADIL (CLOXAZOLAM) [Concomitant]
  5. DIOVAN [Concomitant]
     Active Substance: VALSARTAN
  6. DIOVAN AMLO (AMLODIPINE BESILATE, VALSARTAN) [Concomitant]
  7. PARLODEL [Suspect]
     Active Substance: BROMOCRIPTINE MESYLATE
     Indication: BLOOD PROLACTIN INCREASED
     Route: 048
     Dates: start: 1999
  8. LIPTOR (ATORVASTATIN) [Concomitant]
  9. OMEPRAZOLE (OMEPRAZOLE) [Concomitant]
     Active Substance: OMEPRAZOLE

REACTIONS (4)
  - Dysuria [None]
  - Blood prolactin increased [None]
  - Hormone level abnormal [None]
  - Drug ineffective [None]
